FAERS Safety Report 6330310-2 (Version None)
Quarter: 2009Q3

REPORT INFORMATION
  Report Type: 
  Country: None (occurrence: None)
  Receive Date: 20090827
  Receipt Date: 20090730
  Transmission Date: 20100115
  Serious: No
  Sender: FDA-Public Use
  Company Number: US-KINGPHARMUSA00001-K200900909

PATIENT
  Age: 2 Year
  Sex: Female
  Weight: 11.791 kg

DRUGS (1)
  1. FLECTOR [Suspect]
     Dosage: 1 PATCH, UNK
     Route: 061
     Dates: start: 20090730, end: 20090730

REACTIONS (2)
  - ACCIDENTAL EXPOSURE [None]
  - NO ADVERSE EVENT [None]
